FAERS Safety Report 8829886 (Version 1)
Quarter: 2012Q4

REPORT INFORMATION
  Report Type: 
  Country: US (occurrence: US)
  Receive Date: 20121008
  Receipt Date: 20121008
  Transmission Date: 20130627
  Serious: Yes (Hospitalization)
  Sender: FDA-Public Use
  Company Number: US-PFIZER INC-2012245149

PATIENT
  Age: 45 Year
  Sex: Female

DRUGS (3)
  1. GEMCITABINE HYDROCHLORIDE [Suspect]
     Indication: BILE DUCT CANCER NON-RESECTABLE
     Dosage: UNK, 2-week interval
  2. OXALIPLATIN [Suspect]
     Indication: BILE DUCT CANCER NON-RESECTABLE
     Dosage: UNK, 2-week interval
  3. AVASTIN [Suspect]
     Indication: BILE DUCT CANCER NON-RESECTABLE
     Dosage: UNK, 2-week interval

REACTIONS (2)
  - Posterior reversible encephalopathy syndrome [Recovered/Resolved]
  - Hypertension [None]
